FAERS Safety Report 6468438-9 (Version None)
Quarter: 2009Q4

REPORT INFORMATION
  Report Type: 
  Country: None (occurrence: None)
  Receive Date: 20091202
  Receipt Date: 20091202
  Transmission Date: 20100525
  Serious: Yes (Other)
  Sender: FDA-Public Use
  Company Number: None

PATIENT
  Age: 62 Year
  Sex: Female
  Weight: 62.1428 kg

DRUGS (2)
  1. CLINDAMYCIN [Suspect]
     Indication: INFECTION
     Dosage: 300 MG 2XDAY
  2. CLINDAMYCIN [Suspect]
     Indication: PROPHYLAXIS
     Dosage: 300 MG 2XDAY

REACTIONS (2)
  - CLOSTRIDIAL INFECTION [None]
  - DIARRHOEA [None]
